FAERS Safety Report 12500954 (Version 4)
Quarter: 2016Q4

REPORT INFORMATION
  Report Type: Report from Study
  Country: CL (occurrence: CL)
  Receive Date: 20160627
  Receipt Date: 20161215
  Transmission Date: 20170207
  Serious: Yes (Other)
  Sender: FDA-Public Use
  Company Number: CL-SA-2016SA095099

PATIENT
  Age: 54 Year
  Sex: Male

DRUGS (1)
  1. LEMTRADA [Suspect]
     Active Substance: ALEMTUZUMAB
     Indication: RELAPSING-REMITTING MULTIPLE SCLEROSIS
     Route: 041
     Dates: start: 20160511, end: 20160515

REACTIONS (13)
  - Tinnitus [Recovered/Resolved]
  - Discomfort [Unknown]
  - Headache [Recovered/Resolved]
  - Paraesthesia [Recovered/Resolved]
  - Nuclear magnetic resonance imaging abnormal [Not Recovered/Not Resolved]
  - Vision blurred [Recovered/Resolved]
  - Blindness transient [Recovered/Resolved]
  - Visual acuity reduced [Not Recovered/Not Resolved]
  - Fatigue [Recovered/Resolved]
  - Hypokinesia [Recovered/Resolved]
  - Sensory loss [Recovered/Resolved]
  - Hypoaesthesia [Recovering/Resolving]
  - Pain [Unknown]

NARRATIVE: CASE EVENT DATE: 2016
